FAERS Safety Report 9538571 (Version 1)
Quarter: 2013Q3

REPORT INFORMATION
  Report Type: Other
  Country: GB (occurrence: GB)
  Receive Date: 20130920
  Receipt Date: 20130920
  Transmission Date: 20140515
  Serious: Yes (Hospitalization)
  Sender: FDA-Public Use
  Company Number: GB-PERRIGO-13GB009518

PATIENT
  Age: 51 Year
  Sex: Male

DRUGS (1)
  1. IBUPROFEN 16028/0027 200 MG [Suspect]
     Indication: TOOTHACHE
     Dosage: 400 MG, Q 4 HOURS
     Route: 048
     Dates: start: 201307, end: 201308

REACTIONS (1)
  - Peptic ulcer perforation [Recovering/Resolving]
